FAERS Safety Report 24586143 (Version 2)
Quarter: 2024Q4

REPORT INFORMATION
  Report Type: Spontaneous
  Country: DK (occurrence: DK)
  Receive Date: 20241106
  Receipt Date: 20241127
  Transmission Date: 20250114
  Serious: Yes (Hospitalization, Other)
  Sender: MERCK
  Company Number: DK-009507513-2411DNK000653

PATIENT
  Age: 33 Year
  Sex: Female

DRUGS (3)
  1. PEMBROLIZUMAB [Suspect]
     Active Substance: PEMBROLIZUMAB
     Indication: Triple negative breast cancer
     Dosage: UNK, EVERY 6 WEEKS, FOR 4 CYCLES
     Dates: start: 2023
  2. CARBOPLATIN [Suspect]
     Active Substance: CARBOPLATIN
     Indication: Triple negative breast cancer
     Dosage: UNK, FOR 4 CYCLES
     Dates: start: 2023
  3. PACLITAXEL [Suspect]
     Active Substance: PACLITAXEL
     Indication: Triple negative breast cancer
     Dosage: UNK, FOR 4 CYCLES
     Dates: start: 2023

REACTIONS (18)
  - Urinary tract infection [Unknown]
  - Chest pain [Unknown]
  - Palpitations [Unknown]
  - Nasopharyngitis [Unknown]
  - Haemolytic uraemic syndrome [Unknown]
  - Renal impairment [Unknown]
  - Haemolytic anaemia [Unknown]
  - Dizziness [Unknown]
  - Nausea [Unknown]
  - Fatigue [Unknown]
  - Pyrexia [Unknown]
  - Blood pressure decreased [Unknown]
  - Cardiac murmur [Unknown]
  - Surgery [Unknown]
  - Therapy partial responder [Unknown]
  - Abdominal discomfort [Unknown]
  - Vomiting [Unknown]
  - Rash [Unknown]

NARRATIVE: CASE EVENT DATE: 20230601
